FAERS Safety Report 17023473 (Version 3)
Quarter: 2019Q4

REPORT INFORMATION
  Report Type: Report from Study
  Country: None (occurrence: DE)
  Receive Date: 20191112
  Receipt Date: 20191127
  Transmission Date: 20200122
  Serious: Yes (Hospitalization)
  Sender: FDA-Public Use
  Company Number: DE-ABBVIE-19K-062-2996477-00

PATIENT
  Age: 9 Year
  Sex: Male
  Weight: 36 kg

DRUGS (8)
  1. TOCILIZUMAB. [Concomitant]
     Active Substance: TOCILIZUMAB
     Indication: PRODUCT USED FOR UNKNOWN INDICATION
     Dates: start: 20170410
  2. AVASTIN [Suspect]
     Active Substance: BEVACIZUMAB
     Indication: ISCHAEMIA
     Route: 065
     Dates: start: 201703, end: 201703
  3. HUMIRA [Suspect]
     Active Substance: ADALIMUMAB
     Indication: JUVENILE IDIOPATHIC ARTHRITIS
     Route: 058
     Dates: start: 20140909, end: 20170322
  4. CORTISONE [Suspect]
     Active Substance: CORTISONE
     Indication: JUVENILE IDIOPATHIC ARTHRITIS
  5. CORTISONE [Suspect]
     Active Substance: CORTISONE
     Indication: UVEITIS
     Route: 065
     Dates: start: 201703, end: 201703
  6. AVASTIN [Suspect]
     Active Substance: BEVACIZUMAB
     Indication: UVEITIS
  7. HUMIRA [Suspect]
     Active Substance: ADALIMUMAB
     Route: 058
  8. MTX [Suspect]
     Active Substance: METHOTREXATE SODIUM
     Indication: JUVENILE IDIOPATHIC ARTHRITIS
     Route: 048
     Dates: start: 20100419

REACTIONS (3)
  - Iridocyclitis [Not Recovered/Not Resolved]
  - Psoriasis [Not Recovered/Not Resolved]
  - Ischaemia [Recovered/Resolved]

NARRATIVE: CASE EVENT DATE: 20170910
